FAERS Safety Report 18961943 (Version 1)
Quarter: 2021Q1

REPORT INFORMATION
  Report Type: Spontaneous
  Country: US (occurrence: US)
  Receive Date: 20210302
  Receipt Date: 20210302
  Transmission Date: 20210420
  Serious: Yes (Death)
  Sender: FDA-Public Use
  Company Number: None

PATIENT
  Age: 87 Year
  Sex: Male
  Weight: 86 kg

DRUGS (1)
  1. CAPECITABINE (CAPECITABINE 500MG TAB) [Suspect]
     Active Substance: CAPECITABINE
     Route: 048
     Dates: start: 20201207, end: 20201216

REACTIONS (1)
  - Sudden death [None]

NARRATIVE: CASE EVENT DATE: 20201216
